FAERS Safety Report 8223728-4 (Version None)
Quarter: 2012Q1

REPORT INFORMATION
  Report Type: 
  Country: None (occurrence: None)
  Receive Date: 20120321
  Receipt Date: 20120309
  Transmission Date: 20120608
  Serious: Yes (Hospitalization)
  Sender: FDA-Public Use
  Company Number: FI-JNJFOC-20120306276

PATIENT
  Age: 50 Year
  Sex: Male

DRUGS (5)
  1. FOLIC ACID [Concomitant]
     Route: 065
  2. AMLODIPINE [Concomitant]
     Route: 065
  3. REMICADE [Suspect]
     Indication: PSORIATIC ARTHROPATHY
     Route: 042
     Dates: start: 20120305
  4. RAMIPRIL [Concomitant]
     Indication: HYPERTENSION
     Route: 065
  5. ALL OTHER THERAPEUTICS [Concomitant]
     Route: 065

REACTIONS (7)
  - OROPHARYNGEAL PAIN [None]
  - DYSPNOEA [None]
  - INFUSION RELATED REACTION [None]
  - RESTLESSNESS [None]
  - BLOOD PRESSURE INCREASED [None]
  - PHARYNGEAL OEDEMA [None]
  - OROPHARYNGEAL SWELLING [None]
